FAERS Safety Report 8175159-3 (Version None)
Quarter: 2012Q1

REPORT INFORMATION
  Report Type: 
  Country: None (occurrence: None)
  Receive Date: 20120229
  Receipt Date: 20120222
  Transmission Date: 20120608
  Serious: Yes (Other)
  Sender: FDA-Public Use
  Company Number: US-US-EMD SERONO, INC.-7023326

PATIENT
  Sex: Female
  Weight: 61 kg

DRUGS (2)
  1. REBIF [Suspect]
     Indication: MULTIPLE SCLEROSIS
     Route: 058
     Dates: start: 20090730
  2. FLU VACCINE [Concomitant]
     Dates: start: 20100901

REACTIONS (5)
  - INFLUENZA [None]
  - THERMAL BURN [None]
  - MUSCULAR WEAKNESS [None]
  - CELLULITIS [None]
  - STAPHYLOCOCCAL INFECTION [None]
